FAERS Safety Report 7552372-7 (Version None)
Quarter: 2011Q2

REPORT INFORMATION
  Report Type: 
  Country: None (occurrence: None)
  Receive Date: 20110616
  Receipt Date: 20080929
  Transmission Date: 20111010
  Serious: Yes (Other)
  Sender: FDA-Public Use
  Company Number: PHFR2005GB03332

PATIENT
  Sex: Female

DRUGS (8)
  1. BISOPROLOL FUMARATE [Concomitant]
     Route: 065
  2. PROCYCLIDINE HYDROCHLORIDE 2MG TAB [Concomitant]
     Route: 065
  3. ATORVASTATIN [Concomitant]
     Route: 065
  4. AMISULPRIDE [Concomitant]
     Route: 065
  5. MIRTAZAPINE [Concomitant]
     Route: 065
  6. CLOZAPINE [Suspect]
     Indication: SCHIZOPHRENIA
     Dosage: 350MG MRNG, 250MG NOCTE
     Route: 065
     Dates: end: 20080901
  7. TEMAZEPAM [Concomitant]
     Route: 065
  8. FUROSEMIDE [Concomitant]
     Route: 065

REACTIONS (4)
  - HEART VALVE INCOMPETENCE [None]
  - HAEMOGLOBIN DECREASED [None]
  - DYSPNOEA [None]
  - PLATELET COUNT DECREASED [None]
